FAERS Safety Report 6816719-9 (Version None)
Quarter: 2010Q3

REPORT INFORMATION
  Report Type: 
  Country: None (occurrence: None)
  Receive Date: 20100706
  Receipt Date: 20100622
  Transmission Date: 20110219
  Serious: Yes (Hospitalization)
  Sender: FDA-Public Use
  Company Number: PHHY2010DE41385

PATIENT
  Sex: Female

DRUGS (1)
  1. ZOMETA [Suspect]
     Indication: BONE NEOPLASM MALIGNANT
     Route: 042

REACTIONS (7)
  - BONE GRAFT [None]
  - DENTAL PROSTHESIS PLACEMENT [None]
  - MASTICATION DISORDER [None]
  - OSTEONECROSIS OF JAW [None]
  - QUALITY OF LIFE DECREASED [None]
  - TOOTH EXTRACTION [None]
  - TOOTHACHE [None]
